FAERS Safety Report 23738030 (Version 1)
Quarter: 2024Q2

REPORT INFORMATION
  Report Type: Spontaneous
  Country: US (occurrence: None)
  Receive Date: 20240412
  Receipt Date: 20240412
  Transmission Date: 20240716
  Serious: Yes (Hospitalization)
  Sender: FDA-Public Use
  Company Number: None

PATIENT
  Sex: Female

DRUGS (1)
  1. RINVOQ [Suspect]
     Active Substance: UPADACITINIB
     Indication: Colitis ulcerative
     Dosage: FREQUENCY : DAILY;?
     Route: 048
     Dates: start: 202311

REACTIONS (6)
  - Colitis ulcerative [None]
  - Condition aggravated [None]
  - Product residue present [None]
  - Vomiting [None]
  - Dizziness [None]
  - Depression [None]
